FAERS Safety Report 26149584 (Version 1)
Quarter: 2025Q4

REPORT INFORMATION
  Report Type: Spontaneous
  Country: CN (occurrence: CN)
  Receive Date: 20251212
  Receipt Date: 20251212
  Transmission Date: 20260118
  Serious: Yes (Life-Threatening, Hospitalization)
  Sender: BAYER HEALTHCARE PHARMACEUTICALS INC.
  Company Number: CN-MLMSERVICE-20251127-PI730597-00230-1

PATIENT
  Age: 71 Year
  Sex: Female

DRUGS (1)
  1. MOXIFLOXACIN [Suspect]
     Active Substance: MOXIFLOXACIN
     Indication: Pneumonia
     Route: 042
     Dates: start: 202402

REACTIONS (4)
  - Kounis syndrome [Recovered/Resolved]
  - Coronary artery stenosis [Recovered/Resolved]
  - Acute myocardial infarction [Recovered/Resolved]
  - Drug hypersensitivity [Recovered/Resolved]

NARRATIVE: CASE EVENT DATE: 20240201
